FAERS Safety Report 13375717 (Version 2)
Quarter: 2017Q4

REPORT INFORMATION
  Report Type: Spontaneous
  Country: CN (occurrence: CN)
  Receive Date: 20170328
  Receipt Date: 20171104
  Transmission Date: 20180320
  Serious: Yes (Hospitalization, Other)
  Sender: FDA-Public Use
  Company Number: CN-ACCORD-049539

PATIENT
  Age: 56 Year
  Sex: Male

DRUGS (8)
  1. TIROFIBAN [Concomitant]
     Active Substance: TIROFIBAN
     Indication: ACUTE CORONARY SYNDROME
     Dosage: (MAINTAINED FOR 40 H) Q6 H PUMPED IN
     Route: 042
     Dates: start: 20151106
  2. ATORVASTATIN [Concomitant]
     Active Substance: ATORVASTATIN
     Indication: ACUTE CORONARY SYNDROME
     Route: 048
     Dates: start: 20151107
  3. ISOSORBIDE. [Concomitant]
     Active Substance: ISOSORBIDE
     Indication: ACUTE CORONARY SYNDROME
     Route: 048
     Dates: start: 20151107
  4. RABEPRAZOLE/RABEPRAZOLE SODIUM [Concomitant]
     Indication: ACUTE CORONARY SYNDROME
     Route: 048
     Dates: start: 20151107
  5. ILOPROST/ILOPROST TROMETAMINE/ILOPROST TROMETAMOL [Concomitant]
     Indication: ACUTE CORONARY SYNDROME
     Route: 048
     Dates: start: 20151107
  6. ACETYLSALICYLIC ACID [Concomitant]
     Active Substance: ASPIRIN
     Indication: ACUTE CORONARY SYNDROME
     Dosage: 50 GM TWICE DAILY
     Route: 048
     Dates: start: 20151107
  7. METOPROLOL. [Concomitant]
     Active Substance: METOPROLOL
     Indication: ACUTE CORONARY SYNDROME
     Route: 048
     Dates: start: 20151107
  8. CLOPIDOGREL [Suspect]
     Active Substance: CLOPIDOGREL BISULFATE
     Indication: ACUTE CORONARY SYNDROME
     Route: 048
     Dates: start: 20151106, end: 20151106

REACTIONS (7)
  - Hyperhidrosis [Recovered/Resolved]
  - Nausea [Recovered/Resolved]
  - Vomiting [Recovered/Resolved]
  - Electrocardiogram abnormal [Recovered/Resolved]
  - Chest pain [Recovered/Resolved]
  - Drug resistance [Recovered/Resolved]
  - Vascular stent thrombosis [Recovered/Resolved]

NARRATIVE: CASE EVENT DATE: 20151107
